FAERS Safety Report 14454343 (Version 1)
Quarter: 2018Q1

REPORT INFORMATION
  Report Type: Spontaneous
  Country: US (occurrence: US)
  Receive Date: 20180129
  Receipt Date: 20180129
  Transmission Date: 20180509
  Serious: No
  Sender: FDA-Public Use
  Company Number: US-PERRIGO-17US002940

PATIENT
  Age: 81 Year
  Sex: Female

DRUGS (1)
  1. TRETINOIN. [Suspect]
     Active Substance: TRETINOIN
     Indication: SKIN WRINKLING
     Dosage: PEA SIZED AMOUNT, QPM
     Route: 061
     Dates: start: 20170324, end: 20170326

REACTIONS (3)
  - Application site exfoliation [Unknown]
  - Off label use [Recovered/Resolved]
  - Drug administered to patient of inappropriate age [None]

NARRATIVE: CASE EVENT DATE: 201703
